FAERS Safety Report 13977933 (Version 1)
Quarter: 2017Q3

REPORT INFORMATION
  Report Type: Spontaneous
  Country: US (occurrence: None)
  Receive Date: 20170915
  Receipt Date: 20170915
  Transmission Date: 20171128
  Serious: Yes (Hospitalization)
  Sender: FDA-Public Use
  Company Number: None

PATIENT
  Age: 80 Year
  Sex: Female
  Weight: 47.7 kg

DRUGS (4)
  1. 5-FLUOROURACIL (5-FU) [Suspect]
     Active Substance: FLUOROURACIL
     Dates: end: 20080303
  2. BEVACIZUMAB (RHUMAB VEGF) [Suspect]
     Active Substance: BEVACIZUMAB
     Dates: end: 20080303
  3. LEUCOVORIN CALCIUM. [Suspect]
     Active Substance: LEUCOVORIN CALCIUM
     Dates: end: 20080303
  4. ELOXATIN [Suspect]
     Active Substance: OXALIPLATIN
     Dates: end: 20080303

REACTIONS (5)
  - Vomiting [None]
  - Abdominal distension [None]
  - Nausea [None]
  - Diarrhoea [None]
  - Small intestinal obstruction [None]

NARRATIVE: CASE EVENT DATE: 20080303
